FAERS Safety Report 13364630 (Version 1)
Quarter: 2017Q1

REPORT INFORMATION
  Report Type: Spontaneous
  Country: US (occurrence: US)
  Receive Date: 20170323
  Receipt Date: 20170323
  Transmission Date: 20170429
  Serious: No
  Sender: FDA-Public Use
  Company Number: US-ROCHE-1416093

PATIENT
  Sex: Female

DRUGS (4)
  1. LUTERAN [Concomitant]
     Active Substance: CHLORMADINONE ACETATE
     Indication: ASTHMA
     Route: 065
     Dates: start: 20140317, end: 20140605
  2. FLUTICASONE. [Concomitant]
     Active Substance: FLUTICASONE
     Indication: ASTHMA
     Route: 065
  3. XOLAIR [Suspect]
     Active Substance: OMALIZUMAB
     Indication: ASTHMA
     Route: 058
     Dates: start: 201305, end: 201406
  4. VENTOLIN HFA [Concomitant]
     Active Substance: ALBUTEROL SULFATE
     Indication: ASTHMA
     Route: 065
     Dates: start: 20140106

REACTIONS (1)
  - Drug ineffective [Unknown]
